FAERS Safety Report 5394592-6 (Version None)
Quarter: 2007Q3

REPORT INFORMATION
  Report Type: 
  Country: None (occurrence: None)
  Receive Date: 20070720
  Receipt Date: 20070706
  Transmission Date: 20080115
  Serious: Yes (Hospitalization)
  Sender: FDA-Public Use
  Company Number: 8025264

PATIENT
  Age: 35 Year
  Sex: Female

DRUGS (3)
  1. LORTAB [Suspect]
     Indication: BACK PAIN
     Dosage: PO
     Route: 048
     Dates: end: 20070628
  2. LORTAB [Suspect]
     Indication: NECK PAIN
     Dosage: PO
     Route: 048
     Dates: end: 20070628
  3. SKELAXIN [Suspect]
     Dosage: 24 DF ONCE PO
     Route: 048
     Dates: start: 20070628, end: 20070628

REACTIONS (3)
  - CARDIAC ARREST [None]
  - DRUG ABUSER [None]
  - DRUG DEPENDENCE [None]
